FAERS Safety Report 4735114-X (Version None)
Quarter: 2005Q3

REPORT INFORMATION
  Report Type: 
  Country: None (occurrence: None)
  Receive Date: 20050804
  Receipt Date: 20050719
  Transmission Date: 20060218
  Serious: Yes (Death, Life-Threatening, Other)
  Sender: FDA-Public Use
  Company Number: USA0507103196

PATIENT
  Age: 71 Year
  Sex: Female

DRUGS (3)
  1. HUMALOG [Suspect]
     Indication: DIABETES MELLITUS
     Dates: start: 20030306
  2. HUMULIN N [Suspect]
     Indication: DIABETES MELLITUS
     Dosage: 49 U DAY
     Dates: start: 19650101
  3. HUMULIN R [Suspect]
     Indication: DIABETES MELLITUS
     Dosage: 26 U DAY
     Dates: start: 19650101

REACTIONS (4)
  - CARDIAC DISORDER [None]
  - CARDIAC FAILURE CONGESTIVE [None]
  - HYPERTENSION [None]
  - MYASTHENIA GRAVIS [None]
